FAERS Safety Report 18912437 (Version 1)
Quarter: 2021Q1

REPORT INFORMATION
  Report Type: Spontaneous
  Country: US (occurrence: US)
  Receive Date: 20210219
  Receipt Date: 20210219
  Transmission Date: 20210420
  Serious: Yes (Death)
  Sender: FDA-Public Use
  Company Number: US-ROCHE-2773484

PATIENT
  Age: 78 Year
  Sex: Male

DRUGS (2)
  1. ESBRIET [Suspect]
     Active Substance: PIRFENIDONE
     Indication: IDIOPATHIC PULMONARY FIBROSIS
     Route: 048
     Dates: start: 20151017, end: 20210216
  2. DILTIAZEM. [Concomitant]
     Active Substance: DILTIAZEM

REACTIONS (1)
  - Death [Fatal]

NARRATIVE: CASE EVENT DATE: 20210216
